FAERS Safety Report 24454235 (Version 2)
Quarter: 2024Q4

REPORT INFORMATION
  Report Type: Report from Study
  Country: DE (occurrence: DE)
  Receive Date: 20241017
  Receipt Date: 20241018
  Transmission Date: 20250115
  Serious: No
  Sender: ROCHE
  Company Number: DE-ROCHE-3444747

PATIENT
  Age: 42 Year
  Sex: Male

DRUGS (2)
  1. RITUXIMAB [Suspect]
     Active Substance: RITUXIMAB
     Indication: Secondary progressive multiple sclerosis
     Route: 041
     Dates: start: 20230608
  2. NABIXIMOLS [Concomitant]
     Active Substance: NABIXIMOLS
     Dosage: 3 SPRAYS IN THE MORNING

REACTIONS (4)
  - Off label use [Unknown]
  - Gait disturbance [Not Recovered/Not Resolved]
  - Bladder disorder [Not Recovered/Not Resolved]
  - Urinary tract infection [Recovered/Resolved]

NARRATIVE: CASE EVENT DATE: 20230608
